FAERS Safety Report 23101494 (Version 1)
Quarter: 2023Q4

REPORT INFORMATION
  Report Type: Report from Study
  Country: US (occurrence: US)
  Receive Date: 20231024
  Receipt Date: 20231024
  Transmission Date: 20240109
  Serious: Yes (Other)
  Sender: FDA-Public Use
  Company Number: US-ABBVIE-5462204

PATIENT
  Age: 61 Year
  Sex: Female

DRUGS (2)
  1. SKYRIZI [Suspect]
     Active Substance: RISANKIZUMAB-RZAA
     Indication: Psoriasis
     Dosage: TIME INTERVAL: TOTAL: DOSAGE: 150 MG/ML STRENGTH:150MG/ML, WEEK 4, EVERY 12 WEEKS THEREAFTER
     Route: 058
     Dates: start: 20230831, end: 20230831
  2. SKYRIZI [Suspect]
     Active Substance: RISANKIZUMAB-RZAA
     Dosage: TIME INTERVAL: TOTAL: DOSAGE: 150 MG/ML STRENGTH:150MG/ML, WEEK 0
     Route: 058
     Dates: start: 20230803, end: 20230803

REACTIONS (7)
  - Tooth abscess [Unknown]
  - Chills [Unknown]
  - Rash [Unknown]
  - Cough [Not Recovered/Not Resolved]
  - SARS-CoV-2 test positive [Unknown]
  - Pyrexia [Unknown]
  - Respiratory tract congestion [Unknown]

NARRATIVE: CASE EVENT DATE: 20230901
